FAERS Safety Report 9908670 (Version 1)
Quarter: 2014Q1

REPORT INFORMATION
  Report Type: Spontaneous
  Country: US (occurrence: None)
  Receive Date: 20140214
  Receipt Date: 20140214
  Transmission Date: 20141002
  Serious: Yes (Hospitalization)
  Sender: FDA-Public Use
  Company Number: None

PATIENT
  Age: 87 Year
  Sex: Male
  Weight: 90.8 kg

DRUGS (13)
  1. XARELTO [Suspect]
     Indication: ATRIAL FIBRILLATION
     Dosage: RECENT
     Route: 048
  2. ASA [Suspect]
     Dosage: CHRONIC
     Route: 048
  3. PACERONE [Suspect]
     Indication: ATRIAL FIBRILLATION
     Dosage: CHRONIC
  4. ZOCOR [Concomitant]
  5. FISH OIL [Concomitant]
  6. MVI [Concomitant]
  7. NORVASC [Concomitant]
  8. HUMALOG [Concomitant]
  9. LOPRESSOR [Concomitant]
  10. LASIX [Concomitant]
  11. CHOLESCALCIFEROL [Concomitant]
  12. HUMALOG MIX [Concomitant]
  13. FLONASE [Concomitant]

REACTIONS (5)
  - Epistaxis [None]
  - Asthenia [None]
  - Faeces discoloured [None]
  - Anaemia [None]
  - Melaena [None]
